FAERS Safety Report 17350676 (Version 5)
Quarter: 2021Q2

REPORT INFORMATION
  Report Type: Report from Study
  Country: None (occurrence: US)
  Receive Date: 20200130
  Receipt Date: 20210602
  Transmission Date: 20210716
  Serious: Yes (Hospitalization)
  Sender: FDA-Public Use
  Company Number: US-ABBVIE-20K-163-3253445-00

PATIENT
  Age: 70 Year
  Sex: Male

DRUGS (2)
  1. VENCLEXTA [Suspect]
     Active Substance: VENETOCLAX
     Indication: WALDENSTROM^S MACROGLOBULINAEMIA
     Dosage: TAKE 4 TABLET BY MOUTH EVERY DAY WITH FOOD
     Route: 048
     Dates: start: 201805
  2. VENCLEXTA [Suspect]
     Active Substance: VENETOCLAX
     Indication: HYPOGAMMAGLOBULINAEMIA
     Route: 048

REACTIONS (3)
  - Urinary tract infection bacterial [Recovered/Resolved]
  - Off label use [Unknown]
  - Urinary tract infection [Recovered/Resolved]

NARRATIVE: CASE EVENT DATE: 201805
